FAERS Safety Report 23599270 (Version 1)
Quarter: 2024Q1

REPORT INFORMATION
  Report Type: Spontaneous
  Country: KR (occurrence: KR)
  Receive Date: 20240306
  Receipt Date: 20240306
  Transmission Date: 20240409
  Serious: Yes (Hospitalization, Other)
  Sender: FDA-Public Use
  Company Number: KR-NOVITIUMPHARMA-2024KRNVP00208

PATIENT
  Age: 8 Year
  Sex: Female

DRUGS (3)
  1. NAPROXEN [Suspect]
     Active Substance: NAPROXEN
     Indication: Pyrexia
  2. NAPROXEN [Suspect]
     Active Substance: NAPROXEN
     Indication: Abdominal pain
  3. LORAZEPAM [Concomitant]
     Active Substance: LORAZEPAM
     Indication: Neurological symptom

REACTIONS (1)
  - Reye^s syndrome [Unknown]
